FAERS Safety Report 25240995 (Version 1)
Quarter: 2025Q2

REPORT INFORMATION
  Report Type: Report from Study
  Country: US (occurrence: US)
  Receive Date: 20250425
  Receipt Date: 20250425
  Transmission Date: 20250716
  Serious: Yes (Other)
  Sender: UCB
  Company Number: US-UCBSA-2024045420

PATIENT
  Age: 41 Year
  Sex: Male

DRUGS (1)
  1. BRIVARACETAM [Suspect]
     Active Substance: BRIVARACETAM
     Indication: Seizure
     Dosage: 150 MILLIGRAM, 2X/DAY (BID) (75 MG 2 TABLETS TWICE DAILY)

REACTIONS (4)
  - Brain neoplasm [Not Recovered/Not Resolved]
  - Brain operation [Unknown]
  - Hypersomnia [Not Recovered/Not Resolved]
  - Overdose [Unknown]

NARRATIVE: CASE EVENT DATE: 20240819
